FAERS Safety Report 5428131-8 (Version None)
Quarter: 2007Q3

REPORT INFORMATION
  Report Type: 
  Country: None (occurrence: None)
  Receive Date: 20070828
  Receipt Date: 20070802
  Transmission Date: 20080115
  Serious: No
  Sender: FDA-Public Use
  Company Number: US-BOEHRINGER INGELHEIM PHARMACEUTICALS, INC.-2007-BP-17675BP

PATIENT
  Sex: Female
  Weight: 45 kg

DRUGS (6)
  1. SPIRIVA [Suspect]
     Indication: CHRONIC OBSTRUCTIVE PULMONARY DISEASE
     Route: 055
     Dates: start: 20070621
  2. FOSAMAX [Concomitant]
     Indication: OSTEOPOROSIS
  3. PROVENTIL GENTLEHALER [Concomitant]
  4. GLUCOSAMINE [Concomitant]
  5. CENTRUM SILVER [Concomitant]
  6. OSCAL [Concomitant]

REACTIONS (3)
  - CHEST DISCOMFORT [None]
  - DISCOMFORT [None]
  - DYSPEPSIA [None]
